FAERS Safety Report 16271327 (Version 1)
Quarter: 2019Q2

REPORT INFORMATION
  Report Type: Spontaneous
  Country: FR (occurrence: FR)
  Receive Date: 20190505
  Receipt Date: 20190505
  Transmission Date: 20190711
  Serious: Yes (Hospitalization)
  Sender: FDA-Public Use
  Company Number: FR-BAXTER-2019BAX008546

PATIENT
  Age: 64 Year
  Sex: Female
  Weight: 65 kg

DRUGS (3)
  1. JAKAVI [Suspect]
     Active Substance: RUXOLITINIB
     Indication: DERMATOMYOSITIS
     Dosage: TABLET
     Route: 048
     Dates: start: 20180724, end: 20190411
  2. ENDOXAN 1000 MG, POUDRE POUR SOLUTIONINJECTABLE [Suspect]
     Active Substance: CYCLOPHOSPHAMIDE
     Indication: DERMATOMYOSITIS
     Route: 042
     Dates: start: 20180426, end: 20180727
  3. CORTANCYL [Suspect]
     Active Substance: PREDNISONE
     Indication: DERMATOMYOSITIS
     Dosage: TABLET
     Route: 048
     Dates: start: 20180418

REACTIONS (2)
  - Small cell lung cancer [Not Recovered/Not Resolved]
  - Metastases to liver [Not Recovered/Not Resolved]

NARRATIVE: CASE EVENT DATE: 20190402
